FAERS Safety Report 9310614 (Version 3)
Quarter: 2013Q3

REPORT INFORMATION
  Report Type: Report from Study
  Country: JP (occurrence: JP)
  Receive Date: 20130527
  Receipt Date: 20130729
  Transmission Date: 20140515
  Serious: Yes (Death, Life-Threatening)
  Sender: FDA-Public Use
  Company Number: JP-GENZYME-THYM-1003834

PATIENT
  Age: 45 Year
  Sex: Male
  Weight: 74 kg

DRUGS (31)
  1. THYMOGLOBULIN [Suspect]
     Indication: BONE MARROW CONDITIONING REGIMEN
     Dosage: 20 MG, ONCE OVER 5 HOURS
     Route: 065
     Dates: start: 20110925, end: 20110925
  2. THYMOGLOBULIN [Suspect]
     Dosage: 80 MG, QD OVER 6 HOURS
     Route: 065
     Dates: start: 20110926, end: 20110927
  3. ZOSYN [Concomitant]
     Indication: INFECTION PROPHYLAXIS
     Dosage: UNK
     Route: 065
     Dates: end: 20110925
  4. FINIBAX [Concomitant]
     Indication: INFECTION PROPHYLAXIS
     Dosage: UNK
     Route: 065
     Dates: end: 20111021
  5. FINIBAX [Concomitant]
     Dosage: UNK
     Route: 065
     Dates: start: 20111212, end: 20120216
  6. FUNGUARD [Concomitant]
     Indication: INFECTION PROPHYLAXIS
     Dosage: UNK
     Route: 065
     Dates: end: 20111021
  7. FUNGUARD [Concomitant]
     Dosage: UNK
     Route: 065
     Dates: start: 20111201, end: 20111209
  8. FUNGUARD [Concomitant]
     Dosage: UNK
     Route: 065
     Dates: start: 20111220, end: 20120218
  9. TARGOCID [Concomitant]
     Indication: INFECTION PROPHYLAXIS
     Dosage: UNK
     Route: 065
     Dates: end: 20111021
  10. TARGOCID [Concomitant]
     Dosage: UNK
     Route: 065
     Dates: start: 20111212, end: 20120121
  11. GRAN [Concomitant]
     Indication: ACUTE MYELOID LEUKAEMIA
     Dosage: UNK
     Route: 065
     Dates: start: 20111005, end: 20111007
  12. VENOGLOBLIN-IH [Concomitant]
     Indication: INFECTION PROPHYLAXIS
     Dosage: UNK
     Route: 065
     Dates: start: 20111003, end: 20111218
  13. HANP [Concomitant]
     Indication: CARDIOVASCULAR EVENT PROPHYLAXIS
     Dosage: UNK
     Route: 065
     Dates: start: 20111008, end: 20111011
  14. FOSCAVIR [Concomitant]
     Indication: INFECTION PROPHYLAXIS
     Dosage: UNK
     Route: 065
     Dates: start: 20111011, end: 20111111
  15. FOSCAVIR [Concomitant]
     Dosage: UNK
     Route: 065
     Dates: start: 20111123, end: 20120218
  16. DENOSINE [Concomitant]
     Indication: INFECTION PROPHYLAXIS
     Dosage: UNK
     Route: 065
     Dates: start: 20111026, end: 20111028
  17. TACROLIMUS [Concomitant]
     Indication: ACUTE MYELOID LEUKAEMIA
     Dosage: UNK
     Route: 065
     Dates: end: 20120129
  18. METHYLPREDNISOLONE [Concomitant]
     Indication: ACUTE MYELOID LEUKAEMIA
     Dosage: UNK
     Route: 065
     Dates: end: 20120128
  19. ZOVIRAX [Concomitant]
     Indication: INFECTION PROPHYLAXIS
     Dosage: UNK
     Route: 065
     Dates: start: 20111104, end: 20120123
  20. PARIET [Concomitant]
     Indication: GASTRITIS PROPHYLAXIS
     Dosage: UNK
     Route: 065
     Dates: start: 20111104, end: 20120122
  21. VFEND [Concomitant]
     Indication: INFECTION PROPHYLAXIS
     Dosage: UNK
     Route: 065
     Dates: start: 20111104, end: 20120123
  22. URSO [Concomitant]
     Indication: PROPHYLAXIS
     Dosage: UNK
     Route: 065
     Dates: start: 20111104, end: 20120123
  23. BIOFERMIN R [Concomitant]
     Indication: PROPHYLAXIS AGAINST DIARRHOEA
     Dosage: UNK
     Route: 065
     Dates: start: 20111104, end: 20111130
  24. CRAVIT [Concomitant]
     Indication: INFECTION PROPHYLAXIS
     Dosage: UNK
     Route: 065
     Dates: start: 20111104, end: 20120123
  25. BONALON [Concomitant]
     Indication: OSTEOPOROSIS PROPHYLAXIS
     Dosage: UNK
     Route: 065
     Dates: start: 20111104, end: 20111128
  26. BAKTAR [Concomitant]
     Indication: INFECTION PROPHYLAXIS
     Dosage: UNK
     Route: 065
     Dates: start: 20111104, end: 20111121
  27. CEFTAZIDIME [Concomitant]
     Indication: INFECTION PROPHYLAXIS
     Dosage: UNK
     Route: 065
     Dates: start: 20111105, end: 20111216
  28. NESP [Concomitant]
     Indication: ACUTE MYELOID LEUKAEMIA
     Dosage: UNK
     Route: 065
     Dates: start: 20111109, end: 20111109
  29. ZYVOX [Concomitant]
     Indication: INFECTION PROPHYLAXIS
     Dosage: UNK
     Route: 065
     Dates: start: 20120122, end: 20120218
  30. ACYCLOVIR [Concomitant]
     Indication: INFECTION PROPHYLAXIS
     Dosage: UNK
     Route: 065
     Dates: start: 20111105, end: 20111209
  31. ACYCLOVIR [Concomitant]
     Dosage: UNK
     Route: 065
     Dates: start: 20120213, end: 20120217

REACTIONS (9)
  - Acute myeloid leukaemia [Fatal]
  - Cystitis haemorrhagic [Not Recovered/Not Resolved]
  - Renal failure [Fatal]
  - Immune system disorder [Fatal]
  - Pneumonia [Fatal]
  - Septic shock [Fatal]
  - Pyelonephritis [Not Recovered/Not Resolved]
  - Hypertension [Not Recovered/Not Resolved]
  - Cellulitis [Not Recovered/Not Resolved]
